FAERS Safety Report 6897307-5 (Version None)
Quarter: 2010Q3

REPORT INFORMATION
  Report Type: 
  Country: None (occurrence: None)
  Receive Date: 20100802
  Receipt Date: 20070516
  Transmission Date: 20110219
  Serious: No
  Sender: FDA-Public Use
  Company Number: US-PFIZER INC-2007022169

PATIENT
  Sex: Female
  Weight: 65.8 kg

DRUGS (8)
  1. LYRICA [Suspect]
     Indication: NEURALGIA
     Dosage: 1 EVERY 3 DAYS
     Dates: start: 20070223
  2. DYNACIRC [Concomitant]
  3. LANTUS [Concomitant]
     Dosage: 16-18 UNITS
  4. NOVOLOG [Concomitant]
     Dosage: 2-5 UNITS
  5. LEVOTHYROXINE SODIUM [Concomitant]
     Dosage: ONCE DAILY BUT TWICE ON SUNDAYS
  6. LISINOPRIL [Concomitant]
  7. LISINOPRIL AND HYDROCHLOROTHIAZIDE [Concomitant]
     Dosage: 20-25MG ONCE DAILY
  8. VICODIN [Concomitant]

REACTIONS (7)
  - CONSTIPATION [None]
  - COUGH [None]
  - DRY MOUTH [None]
  - INCORRECT DOSE ADMINISTERED [None]
  - PAIN [None]
  - PAIN IN EXTREMITY [None]
  - SOMNOLENCE [None]
